FAERS Safety Report 13077741 (Version 1)
Quarter: 2017Q1

REPORT INFORMATION
  Report Type: Spontaneous
  Country: US (occurrence: US)
  Receive Date: 20170101
  Receipt Date: 20170101
  Transmission Date: 20170428
  Serious: Yes (Death)
  Sender: FDA-Public Use
  Company Number: US-ASTRAZENECA-2016SF37548

PATIENT
  Age: 69 Year
  Sex: Female

DRUGS (12)
  1. DESVENLAFAXINE. [Suspect]
     Active Substance: DESVENLAFAXINE
     Route: 048
  2. VILAZODONE [Suspect]
     Active Substance: VILAZODONE
     Route: 048
  3. ALPRAZOLAM. [Suspect]
     Active Substance: ALPRAZOLAM
     Route: 048
  4. ACETAMINOPHEN/OXYCODONE [Suspect]
     Active Substance: ACETAMINOPHEN\OXYCODONE HYDROCHLORIDE
     Route: 048
  5. PROPRANOLOL [Suspect]
     Active Substance: PROPRANOLOL HYDROCHLORIDE
     Route: 048
  6. FISH OIL [Suspect]
     Active Substance: FISH OIL
     Route: 048
  7. LEVOMILNACIPRAM [Suspect]
     Active Substance: LEVOMILNACIPRAN
     Route: 048
  8. QUETIAPINE. [Suspect]
     Active Substance: QUETIAPINE
     Route: 048
  9. TOPIRAMATE. [Suspect]
     Active Substance: TOPIRAMATE
     Route: 048
  10. VORTIOXETINE [Suspect]
     Active Substance: VORTIOXETINE
     Route: 048
  11. LEVOTHYOXIN [Suspect]
     Active Substance: LEVOTHYROXINE
     Route: 048
  12. ESTROGENS [Suspect]
     Active Substance: ESTROGENS
     Route: 048

REACTIONS (2)
  - Toxicity to various agents [Fatal]
  - Completed suicide [Fatal]
